FAERS Safety Report 15462142 (Version 2)
Quarter: 2018Q4

REPORT INFORMATION
  Report Type: Spontaneous
  Country: JP (occurrence: JP)
  Receive Date: 20181004
  Receipt Date: 20181008
  Transmission Date: 20190204
  Serious: Yes (Hospitalization)
  Sender: FDA-Public Use
  Company Number: JP-ROCHE-2191462

PATIENT
  Age: 39 Year
  Sex: Male

DRUGS (10)
  1. CALONAL [Concomitant]
     Active Substance: ACETAMINOPHEN
     Indication: PREMEDICATION
     Route: 048
     Dates: start: 20160113, end: 20160113
  2. INSULIN [Concomitant]
     Active Substance: INSULIN NOS
     Indication: TYPE 1 DIABETES MELLITUS
     Route: 058
  3. TACROLIMUS HYDRATE [Concomitant]
     Active Substance: TACROLIMUS
     Indication: IMMUNE TOLERANCE INDUCTION
     Route: 048
     Dates: start: 20150818
  4. BASILIXIMAB [Concomitant]
     Active Substance: BASILIXIMAB
     Indication: IMMUNE TOLERANCE INDUCTION
     Route: 042
     Dates: start: 20150822, end: 20150822
  5. CELLCEPT [Concomitant]
     Active Substance: MYCOPHENOLATE MOFETIL\MYCOPHENOLATE MOFETIL HYDROCHLORIDE
     Indication: IMMUNE TOLERANCE INDUCTION
     Route: 048
     Dates: start: 20150818
  6. RITUXAN [Suspect]
     Active Substance: RITUXIMAB
     Route: 042
     Dates: start: 20160113, end: 20160113
  7. RITUXAN [Suspect]
     Active Substance: RITUXIMAB
     Indication: IMMUNE TOLERANCE INDUCTION
     Route: 042
     Dates: start: 20150818, end: 20150818
  8. BASILIXIMAB [Concomitant]
     Active Substance: BASILIXIMAB
     Route: 065
     Dates: start: 20150822, end: 20150822
  9. GANCICLOVIR. [Concomitant]
     Active Substance: GANCICLOVIR
     Route: 065
     Dates: start: 20160108
  10. NEOMALLERMIN [Concomitant]
     Active Substance: DEXCHLORPHENIRAMINE MALEATE
     Indication: PREMEDICATION
     Route: 042
     Dates: start: 20160113, end: 20160113

REACTIONS (4)
  - Off label use [Unknown]
  - Cytomegalovirus test positive [Recovered/Resolved]
  - Intentional product use issue [Unknown]
  - Anaemia [Recovered/Resolved]

NARRATIVE: CASE EVENT DATE: 20160108
